FAERS Safety Report 9893841 (Version 2)
Quarter: 2014Q2

REPORT INFORMATION
  Report Type: Report from Study
  Country: JP (occurrence: JP)
  Receive Date: 20140213
  Receipt Date: 20140516
  Transmission Date: 20141212
  Serious: Yes (Hospitalization)
  Sender: FDA-Public Use
  Company Number: JP-ALLERGAN-1402487US

PATIENT
  Age: 91 Year
  Sex: Female

DRUGS (10)
  1. BRIMONIDINE 1MG/ML SOL (9541X) [Suspect]
     Indication: OPEN ANGLE GLAUCOMA
     Dosage: 1 DROP IN EACH EYE, TWICE A DAY
     Route: 047
     Dates: start: 20130806
  2. LUMIGAN [Suspect]
     Indication: OPEN ANGLE GLAUCOMA
     Dosage: 1 DROP IN EACH EYE, ONCE A DAY
     Route: 047
  3. MIKELAN LA [Concomitant]
     Dosage: UNK
     Route: 047
  4. AMLODIPINE [Concomitant]
     Dosage: UNK
     Dates: end: 20131031
  5. AVAPRO [Concomitant]
     Dosage: UNK
     Dates: end: 20131031
  6. FUROSEMIDE [Concomitant]
     Dosage: UNK
     Dates: end: 20131031
  7. PARIET [Concomitant]
     Dosage: UNK
     Dates: end: 20131031
  8. XYZAL [Concomitant]
     Dosage: UNK
     Dates: end: 20131031
  9. HANGEKOBOKUTO [Concomitant]
     Dosage: UNK
     Dates: end: 20131031
  10. KAKKONTOKASENKYUSHIN^I [Concomitant]
     Dosage: UNK
     Dates: end: 20131031

REACTIONS (3)
  - Femur fracture [Recovered/Resolved with Sequelae]
  - Fall [Recovered/Resolved with Sequelae]
  - Eosinophilic pneumonia acute [Recovering/Resolving]
